FAERS Safety Report 4627944-X (Version None)
Quarter: 2005Q2

REPORT INFORMATION
  Report Type: 
  Country: None (occurrence: None)
  Receive Date: 20050401
  Receipt Date: 20030915
  Transmission Date: 20051028
  Serious: Yes (Death)
  Sender: FDA-Public Use
  Company Number: 6058

PATIENT
  Age: 17 Year
  Sex: Female

DRUGS (4)
  1. BLEOMYCIN [Suspect]
     Indication: HODGKIN'S DISEASE
  2. DIAZEPAM [Concomitant]
  3. PROPOFOL [Concomitant]
  4. ISOFLURANE [Concomitant]

REACTIONS (3)
  - ACUTE RESPIRATORY DISTRESS SYNDROME [None]
  - RESPIRATORY FAILURE [None]
  - TOOTH ABSCESS [None]
